FAERS Safety Report 14411266 (Version 1)
Quarter: 2018Q1

REPORT INFORMATION
  Report Type: Spontaneous
  Country: US (occurrence: US)
  Receive Date: 20180119
  Receipt Date: 20180119
  Transmission Date: 20180509
  Serious: No
  Sender: FDA-Public Use
  Company Number: US-JNJFOC-20180111886

PATIENT
  Sex: Female

DRUGS (1)
  1. INVOKANA [Suspect]
     Active Substance: CANAGLIFLOZIN
     Indication: PRODUCT USED FOR UNKNOWN INDICATION
     Route: 065

REACTIONS (8)
  - Headache [Unknown]
  - Blood glucose decreased [Unknown]
  - Irritability [Unknown]
  - Hunger [Unknown]
  - Dizziness [Unknown]
  - Confusional state [Unknown]
  - Heart rate increased [Unknown]
  - Somnolence [Unknown]
